FAERS Safety Report 6236820-0 (Version None)
Quarter: 2009Q2

REPORT INFORMATION
  Report Type: 
  Country: None (occurrence: None)
  Receive Date: 20090619
  Receipt Date: 20090612
  Transmission Date: 20091009
  Serious: Yes (Hospitalization, Other)
  Sender: FDA-Public Use
  Company Number: PHHY2009GB24346

PATIENT
  Sex: Female

DRUGS (5)
  1. DAPTOMYCIN [Interacting]
     Indication: ENDOCARDITIS BACTERIAL
     Dosage: 500 MG, UNK
  2. NEORAL [Suspect]
     Indication: APLASTIC ANAEMIA
  3. CIPROFLOXACIN [Interacting]
     Indication: ENDOCARDITIS BACTERIAL
     Dosage: 1000 MG, UNK
  4. RIFAMPICIN [Interacting]
     Indication: ENDOCARDITIS BACTERIAL
     Dosage: 120 MG, UNK
  5. FLUCONAZOLE [Interacting]
     Indication: ENDOCARDITIS BACTERIAL
     Dosage: 400 MG, UNK

REACTIONS (1)
  - DRUG INTERACTION [None]
